FAERS Safety Report 7284559-5 (Version None)
Quarter: 2011Q1

REPORT INFORMATION
  Report Type: 
  Country: None (occurrence: None)
  Receive Date: 20110210
  Receipt Date: 20110131
  Transmission Date: 20110831
  Serious: Yes (Hospitalization)
  Sender: FDA-Public Use
  Company Number: US-BIOGENIDEC-2008BI007905

PATIENT
  Age: 40 Year
  Sex: Female

DRUGS (3)
  1. TYSABRI [Suspect]
     Route: 042
     Dates: start: 20090204
  2. TYSABRI [Suspect]
     Indication: MULTIPLE SCLEROSIS
     Route: 042
     Dates: start: 20050110, end: 20050201
  3. TYSABRI [Suspect]
     Route: 042
     Dates: start: 20070614, end: 20080613

REACTIONS (6)
  - PROCEDURAL COMPLICATION [None]
  - SOMNOLENCE [None]
  - MULTIPLE SCLEROSIS RELAPSE [None]
  - DYSPNOEA [None]
  - AIR EMBOLISM [None]
  - CARDIAC ARREST [None]
